FAERS Safety Report 7284258-X (Version None)
Quarter: 2011Q1

REPORT INFORMATION
  Report Type: 
  Country: None (occurrence: None)
  Receive Date: 20110209
  Receipt Date: 20110203
  Transmission Date: 20110831
  Serious: No
  Sender: FDA-Public Use
  Company Number: US-PFIZER INC-US-WYE-H14536710

PATIENT
  Sex: Female
  Weight: 65.8 kg

DRUGS (2)
  1. EFFEXOR XR [Suspect]
     Indication: ANXIETY
     Dosage: 150 MG, 1X/DAY
     Route: 048
     Dates: start: 20070101, end: 20100322
  2. EFFEXOR XR [Suspect]
     Indication: DEPRESSION
     Dosage: TAPERING OFF
     Dates: start: 20100323, end: 20100331

REACTIONS (8)
  - DRUG WITHDRAWAL SYNDROME [None]
  - BACK PAIN [None]
  - PAIN [None]
  - VOMITING [None]
  - EATING DISORDER [None]
  - NAUSEA [None]
  - ABDOMINAL PAIN UPPER [None]
  - HEADACHE [None]
